FAERS Safety Report 21690835 (Version 1)
Quarter: 2022Q4

REPORT INFORMATION
  Report Type: Report from Study
  Country: CA (occurrence: CA)
  Receive Date: 20221207
  Receipt Date: 20221207
  Transmission Date: 20230113
  Serious: Yes (Other)
  Sender: FDA-Public Use
  Company Number: CA-HLS-202000408

PATIENT
  Age: 14 Year
  Sex: Female
  Weight: 65 kg

DRUGS (1)
  1. CLOZARIL [Suspect]
     Active Substance: CLOZAPINE
     Route: 048
     Dates: start: 20200219

REACTIONS (25)
  - Dyspnoea [Unknown]
  - Alanine aminotransferase increased [Unknown]
  - Activated partial thromboplastin time prolonged [Unknown]
  - Aspartate aminotransferase increased [Unknown]
  - Calcium ionised increased [Unknown]
  - Carbon dioxide decreased [Unknown]
  - Chest pain [Unknown]
  - Blood creatinine increased [Unknown]
  - Eosinophil count decreased [Not Recovered/Not Resolved]
  - Haemoglobin distribution width increased [Not Recovered/Not Resolved]
  - Gamma-glutamyltransferase increased [Unknown]
  - Haematocrit decreased [Not Recovered/Not Resolved]
  - Haemoglobin decreased [Not Recovered/Not Resolved]
  - International normalised ratio increased [Unknown]
  - Blood lactic acid increased [Unknown]
  - Blood lactate dehydrogenase increased [Unknown]
  - Monocyte count increased [Not Recovered/Not Resolved]
  - Electrocardiogram ST segment abnormal [Unknown]
  - Blood phosphorus decreased [Unknown]
  - Electrocardiogram QT prolonged [Recovered/Resolved]
  - Electrocardiogram QT prolonged [Recovered/Resolved]
  - Sinus tachycardia [Not Recovered/Not Resolved]
  - Blood urea decreased [Unknown]
  - Tachycardia [Unknown]
  - Heart rate increased [Recovered/Resolved]

NARRATIVE: CASE EVENT DATE: 20200227
